FAERS Safety Report 7045579-9 (Version None)
Quarter: 2010Q4

REPORT INFORMATION
  Report Type: 
  Country: None (occurrence: None)
  Receive Date: 20101014
  Receipt Date: 20100930
  Transmission Date: 20110411
  Serious: Yes (Other)
  Sender: FDA-Public Use
  Company Number: JP-ROCHE-731416

PATIENT
  Sex: Male

DRUGS (14)
  1. TOCILIZUMAB [Suspect]
     Indication: RHEUMATOID ARTHRITIS
     Route: 041
     Dates: start: 20090128, end: 20090128
  2. RHEUMATREX [Concomitant]
     Route: 048
  3. ISCOTIN [Concomitant]
     Route: 048
  4. PREDNISOLONE [Concomitant]
     Route: 048
  5. LORCAM [Concomitant]
     Route: 048
  6. CYTOTEC [Concomitant]
     Route: 048
  7. ITOROL [Concomitant]
     Route: 048
  8. BENET [Concomitant]
     Route: 048
  9. ASPIRIN [Concomitant]
     Route: 048
  10. HERBESSER [Concomitant]
     Route: 048
  11. LENDORMIN [Concomitant]
     Route: 048
  12. FOLIAMIN [Concomitant]
     Route: 048
  13. BAKTAR [Concomitant]
     Route: 048
  14. AMLODIPINE BESYLATE [Concomitant]
     Route: 048

REACTIONS (3)
  - HENOCH-SCHONLEIN PURPURA [None]
  - INTESTINAL OBSTRUCTION [None]
  - MELAENA [None]
